FAERS Safety Report 15566984 (Version 1)
Quarter: 2018Q4

REPORT INFORMATION
  Report Type: Spontaneous
  Country: US (occurrence: US)
  Receive Date: 20181025
  Receipt Date: 20181025
  Transmission Date: 20190205
  Serious: No
  Sender: FDA-Public Use
  Company Number: None

PATIENT
  Age: 62 Year
  Sex: Female

DRUGS (5)
  1. FLEODIPINE [Concomitant]
  2. OCALIVA [Suspect]
     Active Substance: OBETICHOLIC ACID
     Indication: PRIMARY BILIARY CHOLANGITIS
     Route: 048
     Dates: start: 20170622
  3. PROCHLORPERIZINE [Concomitant]
     Active Substance: PROCHLORPERAZINE
  4. URSODIOL. [Concomitant]
     Active Substance: URSODIOL
  5. ZOMIG [Concomitant]
     Active Substance: ZOLMITRIPTAN

REACTIONS (2)
  - Dry mouth [None]
  - Fatigue [None]
